FAERS Safety Report 16646356 (Version 4)
Quarter: 2020Q2

REPORT INFORMATION
  Report Type: Spontaneous
  Country: FR (occurrence: FR)
  Receive Date: 20190730
  Receipt Date: 20200509
  Transmission Date: 20200713
  Serious: Yes (Other)
  Sender: FDA-Public Use
  Company Number: FR-ROCHE-2364654

PATIENT
  Age: 59 Year
  Sex: Male
  Weight: 62 kg

DRUGS (3)
  1. RIBAVIRIN. [Suspect]
     Active Substance: RIBAVIRIN
     Indication: HEPATITIS C
     Dosage: ON 24/MAR/2015, MOST RECENT DOSE
     Route: 048
     Dates: start: 20141201, end: 20150324
  2. DACLATASVIR. [Suspect]
     Active Substance: DACLATASVIR
     Indication: HEPATITIS C
     Dosage: ON 24/MAR/2015, MOST RECENT DOSE
     Route: 048
     Dates: start: 20141201, end: 20150324
  3. SOFOSBUVIR [Suspect]
     Active Substance: SOFOSBUVIR
     Indication: HEPATITIS C
     Dosage: ON 24/MAR/2015, MOST RECENT DOSE
     Route: 048
     Dates: start: 20141201, end: 20150324

REACTIONS (1)
  - Treatment failure [Unknown]
